FAERS Safety Report 8885239 (Version 5)
Quarter: 2012Q4

REPORT INFORMATION
  Report Type: 
  Country: US (occurrence: US)
  Receive Date: 20121101
  Receipt Date: 20121129
  Transmission Date: 20130627
  Serious: Yes (Other)
  Sender: FDA-Public Use
  Company Number: US-ASTRAZENECA-2012SE81541

PATIENT
  Age: 90 Year
  Sex: Female

DRUGS (3)
  1. NEXIUM [Suspect]
     Route: 048
  2. PRILOSEC OTC [Suspect]
     Route: 048
  3. OVER THE COUNTER MEDICATIONS [Concomitant]

REACTIONS (8)
  - Blindness [Unknown]
  - Presbyacusis [Unknown]
  - Deafness [Unknown]
  - Memory impairment [Unknown]
  - Adverse drug reaction [Unknown]
  - Malaise [Unknown]
  - Diarrhoea [Recovered/Resolved]
  - Drug ineffective [Unknown]
